FAERS Safety Report 4388118-3 (Version None)
Quarter: 2004Q2

REPORT INFORMATION
  Report Type: 
  Country: None (occurrence: None)
  Receive Date: 20040629
  Receipt Date: 20040629
  Transmission Date: 20050107
  Serious: No
  Sender: FDA-Public Use
  Company Number: None

PATIENT
  Age: 51 Year
  Sex: Female
  Weight: 49.8957 kg

DRUGS (6)
  1. MUCINEX [Suspect]
     Indication: SJOGREN'S SYNDROME
     Dosage: 1200 MG  TWICE A DA ORAL
     Route: 048
     Dates: start: 20040110, end: 20040628
  2. SYNTHROID [Concomitant]
  3. PLAQUENIL [Concomitant]
  4. EVOXAC [Concomitant]
  5. SERZONE [Concomitant]
  6. AMBIEN [Concomitant]

REACTIONS (4)
  - DRUG EFFECT DECREASED [None]
  - PHARMACEUTICAL PRODUCT COMPLAINT [None]
  - POSTNASAL DRIP [None]
  - SINUS PAIN [None]
